FAERS Safety Report 10571963 (Version 2)
Quarter: 2014Q4

REPORT INFORMATION
  Report Type: Spontaneous
  Country: CA (occurrence: CA)
  Receive Date: 20141107
  Receipt Date: 20141201
  Transmission Date: 20150529
  Serious: Yes (Life-Threatening, Other)
  Sender: FDA-Public Use
  Company Number: CA-NOVOPROD-428435

PATIENT
  Age: 69 Year
  Sex: Male
  Weight: 100.1 kg

DRUGS (1)
  1. GLUCONORM [Suspect]
     Active Substance: REPAGLINIDE
     Indication: DIABETES MELLITUS
     Dosage: 12 MG, QD
     Route: 048
     Dates: start: 20130327

REACTIONS (3)
  - Pulmonary mass [Unknown]
  - Tachycardia [Recovered/Resolved]
  - Syncope [Recovered/Resolved]

NARRATIVE: CASE EVENT DATE: 20141003
